FAERS Safety Report 4665565-3 (Version None)
Quarter: 2005Q2

REPORT INFORMATION
  Report Type: 
  Country: None (occurrence: None)
  Receive Date: 20050519
  Receipt Date: 20041026
  Transmission Date: 20051028
  Serious: No
  Sender: FDA-Public Use
  Company Number: US-BRISTOL-MYERS SQUIBB COMPANY-12746699

PATIENT
  Age: 46 Year
  Sex: Female
  Weight: 90 kg

DRUGS (11)
  1. MONOPRIL [Suspect]
     Indication: HYPERTENSION
     Dosage: STARTED ABOUT 1 AND 1/2 YEARS AGO
     Route: 048
  2. EFFEXOR [Concomitant]
  3. VALIUM [Concomitant]
  4. PERCOCET [Concomitant]
  5. METHADONE HCL [Concomitant]
  6. ALBUTEROL [Concomitant]
  7. FLOVENT [Concomitant]
  8. VITAMIN E [Concomitant]
  9. VITAMIN B COMPLEX CAP [Concomitant]
     Dosage: HIGH POTENCY
  10. GARLIC [Concomitant]
  11. PRIMROSE OIL [Concomitant]

REACTIONS (4)
  - ABDOMINAL PAIN UPPER [None]
  - NAUSEA [None]
  - OEDEMA PERIPHERAL [None]
  - VOMITING [None]
